FAERS Safety Report 6316288-6 (Version None)
Quarter: 2009Q3

REPORT INFORMATION
  Report Type: 
  Country: None (occurrence: None)
  Receive Date: 20090819
  Receipt Date: 20090819
  Transmission Date: 20100115
  Serious: Yes (Hospitalization)
  Sender: FDA-Public Use
  Company Number: None

PATIENT
  Age: 84 Year
  Sex: Female
  Weight: 53.978 kg

DRUGS (1)
  1. SUNITINIB 50 MG PFIZER [Suspect]
     Indication: BLADDER CANCER
     Dosage: 50 MG QD PO
     Route: 048
     Dates: start: 20090813, end: 20090817

REACTIONS (3)
  - DEHYDRATION [None]
  - RENAL FAILURE ACUTE [None]
  - URINARY TRACT INFECTION [None]
